FAERS Safety Report 10216334 (Version 1)
Quarter: 2014Q2

REPORT INFORMATION
  Report Type: Spontaneous
  Country: US (occurrence: US)
  Receive Date: 20140604
  Receipt Date: 20140604
  Transmission Date: 20141212
  Serious: No
  Sender: FDA-Public Use
  Company Number: US-009507513-1406USA001384

PATIENT
  Sex: Female
  Weight: 58.96 kg

DRUGS (2)
  1. MIRALAX [Suspect]
     Indication: MEGACOLON
     Dosage: 17 G, QD
     Route: 048
     Dates: start: 20140325, end: 20140330
  2. MIRALAX [Suspect]
     Indication: GASTROINTESTINAL HYPOMOTILITY

REACTIONS (2)
  - Dysgeusia [Recovered/Resolved]
  - Off label use [Unknown]
